FAERS Safety Report 8826250 (Version 1)
Quarter: 2012Q4

REPORT INFORMATION
  Report Type: 
  Country: US (occurrence: US)
  Receive Date: 20121005
  Receipt Date: 20121005
  Transmission Date: 20130627
  Serious: Yes (Other)
  Sender: FDA-Public Use
  Company Number: PHEH2012US006685

PATIENT
  Age: 39 Year
  Sex: Female
  Weight: 128 kg

DRUGS (1)
  1. GILENYA [Suspect]
     Indication: MULTIPLE SCLEROSIS
     Dosage: 0.5 mg, QD
     Route: 048
     Dates: start: 20120320

REACTIONS (5)
  - White blood cell count increased [Unknown]
  - Chest discomfort [Recovering/Resolving]
  - Chest pain [Recovered/Resolved]
  - Abdominal discomfort [Recovering/Resolving]
  - Dizziness [Recovering/Resolving]
